FAERS Safety Report 8235805-2 (Version None)
Quarter: 2012Q1

REPORT INFORMATION
  Report Type: 
  Country: None (occurrence: None)
  Receive Date: 20120326
  Receipt Date: 20120314
  Transmission Date: 20120608
  Serious: Yes (Death)
  Sender: FDA-Public Use
  Company Number: JP-ROCHE-1049626

PATIENT
  Sex: Female

DRUGS (7)
  1. MOHRUS TAPE [Concomitant]
     Indication: RHEUMATOID ARTHRITIS
     Route: 061
  2. ALENDRONATE SODIUM [Concomitant]
     Indication: PROPHYLAXIS
     Route: 048
  3. ACTEMRA [Suspect]
     Indication: RHEUMATOID ARTHRITIS
     Dosage: 400-440MG
     Route: 041
     Dates: start: 20080714, end: 20120130
  4. PREDNISOLONE [Concomitant]
     Indication: RHEUMATOID ARTHRITIS
     Route: 048
  5. TIZANIDINE HCL [Concomitant]
     Indication: PROPHYLAXIS
     Route: 048
  6. PREDNISOLONE [Concomitant]
     Dosage: UNCERTAIN DOSAGE (LESS THAN 5MG)
     Route: 048
  7. SENNOSIDE [Concomitant]
     Indication: CONSTIPATION
     Route: 048
     Dates: start: 20081031, end: 20081128

REACTIONS (1)
  - SHOCK [None]
